FAERS Safety Report 9969547 (Version 2)
Quarter: 2014Q1

REPORT INFORMATION
  Report Type: Report from Study
  Country: AU (occurrence: AU)
  Receive Date: 20140306
  Receipt Date: 20140306
  Transmission Date: 20141002
  Serious: Yes (Other)
  Sender: FDA-Public Use
  Company Number: AU-ASTRAZENECA-2014SE01336

PATIENT
  Age: 27312 Day
  Sex: Male

DRUGS (2)
  1. ZOLADEX [Suspect]
     Route: 058
     Dates: start: 20130426
  2. COSUDEX [Suspect]
     Route: 048
     Dates: start: 20130426

REACTIONS (2)
  - Malignant neoplasm progression [Unknown]
  - Hot flush [Not Recovered/Not Resolved]
